FAERS Safety Report 9321043 (Version 1)
Quarter: 2013Q2

REPORT INFORMATION
  Report Type: Spontaneous
  Country: US (occurrence: US)
  Receive Date: 20130531
  Receipt Date: 20130531
  Transmission Date: 20140414
  Serious: No
  Sender: FDA-Public Use
  Company Number: US-009507513-1305USA014055

PATIENT
  Age: 21 Year
  Sex: Female

DRUGS (1)
  1. NEXPLANON [Suspect]
     Indication: CONTRACEPTION
     Dosage: STARDARD DOSING
     Route: 059
     Dates: start: 20130426

REACTIONS (4)
  - Implant site irritation [Unknown]
  - Implant site pruritus [Unknown]
  - Implant site mass [Unknown]
  - Implant site pain [Unknown]
